FAERS Safety Report 21328763 (Version 1)
Quarter: 2022Q3

REPORT INFORMATION
  Report Type: Spontaneous
  Country: MX (occurrence: MX)
  Receive Date: 20220913
  Receipt Date: 20220913
  Transmission Date: 20221026
  Serious: Yes (Other)
  Sender: FDA-Public Use
  Company Number: MX-BAYER-2022P013782

PATIENT
  Age: 56 Year
  Sex: Female

DRUGS (1)
  1. ULTRAVIST [Suspect]
     Active Substance: IOPROMIDE
     Dosage: UNK
     Route: 042
     Dates: start: 20220809, end: 20220809

REACTIONS (3)
  - Injection site injury [None]
  - Injection site oedema [None]
  - Blister [None]

NARRATIVE: CASE EVENT DATE: 20220809
